FAERS Safety Report 14890055 (Version 1)
Quarter: 2018Q2

REPORT INFORMATION
  Report Type: Spontaneous
  Country: FR (occurrence: FR)
  Receive Date: 20180514
  Receipt Date: 20180514
  Transmission Date: 20180711
  Serious: Yes (Other)
  Sender: FDA-Public Use
  Company Number: FR-MERCK KGAA-2047692

PATIENT
  Age: 60 Year
  Sex: Female

DRUGS (1)
  1. NOVOTHYROX [Suspect]
     Active Substance: LEVOTHYROXINE SODIUM
     Indication: PRODUCT USED FOR UNKNOWN INDICATION
     Dates: start: 201705, end: 20171018

REACTIONS (27)
  - Infection [None]
  - Apathy [None]
  - Asthenia [None]
  - Gastrointestinal disorder [None]
  - Migraine [None]
  - Stress [None]
  - Tension [None]
  - Affect lability [None]
  - Decreased immune responsiveness [None]
  - Myalgia [None]
  - Social avoidant behaviour [None]
  - Irritability [None]
  - Mood altered [None]
  - Arthralgia [None]
  - Amnesia [None]
  - Loss of personal independence in daily activities [None]
  - Herpes virus infection [None]
  - Abdominal pain upper [None]
  - Decreased activity [None]
  - Alopecia [None]
  - Oropharyngeal pain [None]
  - Vomiting [None]
  - Nasopharyngitis [None]
  - Onychoclasis [None]
  - Anxiety [None]
  - Fatigue [None]
  - General physical health deterioration [None]

NARRATIVE: CASE EVENT DATE: 201706
